FAERS Safety Report 7582794-X (Version None)
Quarter: 2011Q2

REPORT INFORMATION
  Report Type: 
  Country: None (occurrence: None)
  Receive Date: 20110630
  Receipt Date: 20110617
  Transmission Date: 20111010
  Serious: Yes (Hospitalization, Other)
  Sender: FDA-Public Use
  Company Number: US-BAYER-2011-025230

PATIENT
  Age: 38 Year
  Sex: Female
  Weight: 77 kg

DRUGS (11)
  1. YAZ [Suspect]
     Indication: PREMENSTRUAL SYNDROME
  2. CARISOPRODOL [Concomitant]
     Indication: MUSCLE SPASMS
     Dosage: 8 MG, TID
     Dates: start: 20081001
  3. YAZ [Suspect]
     Indication: ENDOMETRIOSIS
  4. FEXOFENADINE [Concomitant]
     Indication: MULTIPLE ALLERGIES
     Dosage: UNK
     Route: 048
     Dates: start: 20060101
  5. MULTI-VITAMINS [Concomitant]
     Dosage: UNK UNK, QD
     Route: 048
     Dates: start: 20080101
  6. TRAZODONE HCL [Concomitant]
     Indication: SLEEP DISORDER
     Dosage: UNK
     Dates: start: 20071101
  7. OMEPRAZOLE [Concomitant]
     Indication: GASTROOESOPHAGEAL REFLUX DISEASE
     Dosage: 20 MG, QD
     Route: 048
     Dates: start: 20081001
  8. YAZ [Suspect]
     Indication: OVARIAN CYST
  9. ASCORBIC ACID [Concomitant]
     Dosage: UNK
     Dates: start: 20080101
  10. ST. JOHN'S WORT [Concomitant]
     Indication: AFFECTIVE DISORDER
     Dosage: UNK
     Route: 048
     Dates: start: 20071101
  11. YAZ [Suspect]
     Indication: MENSTRUAL DISORDER
     Dosage: UNK
     Dates: start: 20071101, end: 20081001

REACTIONS (11)
  - CHOLECYSTITIS [None]
  - HYPOAESTHESIA FACIAL [None]
  - CEREBROVASCULAR ACCIDENT [None]
  - TRANSIENT ISCHAEMIC ATTACK [None]
  - PULMONARY EMBOLISM [None]
  - GALLBLADDER DISORDER [None]
  - PAIN [None]
  - CONVULSION [None]
  - DEEP VEIN THROMBOSIS [None]
  - DRUG WITHDRAWAL SYNDROME [None]
  - HYPOAESTHESIA [None]
